FAERS Safety Report 4796325-0 (Version None)
Quarter: 2005Q4

REPORT INFORMATION
  Report Type: 
  Country: None (occurrence: None)
  Receive Date: 20051007
  Receipt Date: 20050928
  Transmission Date: 20060501
  Serious: Yes (Other)
  Sender: FDA-Public Use
  Company Number: 200513910BCC

PATIENT
  Age: 77 Year
  Sex: Female
  Weight: 63.5036 kg

DRUGS (3)
  1. ALEVE [Suspect]
     Indication: ARTHRALGIA
     Dosage: 220 MG, BID, ORAL
     Route: 048
     Dates: start: 20050924
  2. DILTIAZEM HCL [Concomitant]
  3. SYNTHROID [Concomitant]

REACTIONS (2)
  - BLOOD PRESSURE INCREASED [None]
  - DIZZINESS [None]
